FAERS Safety Report 10005922 (Version 1)
Quarter: 2014Q1

REPORT INFORMATION
  Report Type: Spontaneous
  Country: IT (occurrence: IT)
  Receive Date: 20140313
  Receipt Date: 20140313
  Transmission Date: 20141002
  Serious: Yes (Death)
  Sender: FDA-Public Use
  Company Number: IT-BEH-2014041081

PATIENT
  Age: 67 Year
  Sex: Male

DRUGS (2)
  1. INTRAVENOUS HUMAN IMMUNOGLOBULIN [Suspect]
     Indication: HASHIMOTO^S ENCEPHALOPATHY
     Route: 042
  2. METHYLPREDNISOLONE [Concomitant]
     Indication: HASHIMOTO^S ENCEPHALOPATHY

REACTIONS (1)
  - Drug ineffective for unapproved indication [Fatal]
